FAERS Safety Report 23290371 (Version 1)
Quarter: 2023Q4

REPORT INFORMATION
  Report Type: Report from Study
  Country: US (occurrence: US)
  Receive Date: 20231213
  Receipt Date: 20231213
  Transmission Date: 20240110
  Serious: Yes (Other)
  Sender: FDA-Public Use
  Company Number: US-ABBVIE-5528461

PATIENT
  Sex: Female
  Weight: 86 kg

DRUGS (2)
  1. SKYRIZI [Suspect]
     Active Substance: RISANKIZUMAB-RZAA
     Indication: Crohn^s disease
     Dosage: FREQUENCY TEXT: UNKNOWN
     Route: 042
     Dates: start: 20231005
  2. SOLU-MEDROL [Concomitant]
     Active Substance: METHYLPREDNISOLONE SODIUM SUCCINATE
     Indication: Inflammation

REACTIONS (8)
  - Multiple sclerosis [Unknown]
  - COVID-19 [Recovering/Resolving]
  - Oropharyngeal discomfort [Unknown]
  - Asthenia [Not Recovered/Not Resolved]
  - Ear pain [Recovering/Resolving]
  - Arthralgia [Not Recovered/Not Resolved]
  - Neurological symptom [Recovering/Resolving]
  - Ear discomfort [Recovering/Resolving]

NARRATIVE: CASE EVENT DATE: 20230101
